FAERS Safety Report 19259196 (Version 3)
Quarter: 2022Q3

REPORT INFORMATION
  Report Type: Spontaneous
  Country: CA (occurrence: CA)
  Receive Date: 20210514
  Receipt Date: 20220817
  Transmission Date: 20221026
  Serious: Yes (Hospitalization, Other)
  Sender: FDA-Public Use
  Company Number: CA-BAXTER-2021BAX010119

PATIENT
  Age: 49 Year
  Sex: Female

DRUGS (42)
  1. NOREPINEPHRINE BITARTRATE [Interacting]
     Active Substance: NOREPINEPHRINE BITARTRATE
     Indication: Hypotension
     Dosage: DOSAGE FORM: NOT SPECIFIED
     Route: 065
  2. NOREPINEPHRINE BITARTRATE [Interacting]
     Active Substance: NOREPINEPHRINE BITARTRATE
     Dosage: UNK
     Route: 065
  3. SEVOFLURANE [Interacting]
     Active Substance: SEVOFLURANE
     Indication: Maintenance of anaesthesia
     Dosage: LIQUID INHALATION
     Route: 065
  4. SEVOFLURANE [Interacting]
     Active Substance: SEVOFLURANE
     Indication: Depression
     Dosage: LIQUID INHALATION
  5. SEVOFLURANE [Interacting]
     Active Substance: SEVOFLURANE
     Indication: Anxiety
  6. PROPOFOL [Interacting]
     Active Substance: PROPOFOL
     Indication: Induction of anaesthesia
     Dosage: 9 MG/KG, DOSAGE FROM NOT SPECIFIED
     Route: 065
  7. PROPOFOL [Interacting]
     Active Substance: PROPOFOL
     Dosage: DOSAGE FROM NOT SPECIFIED
     Route: 065
  8. CLONAZEPAM [Interacting]
     Active Substance: CLONAZEPAM
     Indication: Depression
     Dosage: DOSAGE FORM: TABLETS
     Route: 065
  9. CLONAZEPAM [Interacting]
     Active Substance: CLONAZEPAM
     Indication: Anxiety
     Dosage: 0.5 MILLIGRAM (MG)
     Route: 065
  10. CLONAZEPAM [Interacting]
     Active Substance: CLONAZEPAM
     Dosage: 0.5 MILLIGRAM (MG)
     Route: 065
  11. CLONAZEPAM [Interacting]
     Active Substance: CLONAZEPAM
     Dosage: 1 MILLIGRAM (MG)
     Route: 065
  12. CLONAZEPAM [Interacting]
     Active Substance: CLONAZEPAM
     Dosage: 1 MILLIGRAM (MG)
     Route: 065
  13. CLONAZEPAM [Interacting]
     Active Substance: CLONAZEPAM
     Dosage: DOSAGE FORM: TABLET
     Route: 065
  14. CLONAZEPAM [Interacting]
     Active Substance: CLONAZEPAM
     Dosage: DOSAGE FORM: TABLET
     Route: 065
  15. CLONAZEPAM [Interacting]
     Active Substance: CLONAZEPAM
     Dosage: DOSAGE FORM: TABLET
     Route: 065
  16. CLONAZEPAM [Interacting]
     Active Substance: CLONAZEPAM
     Dosage: UNK
     Route: 065
  17. DIAZEPAM [Interacting]
     Active Substance: DIAZEPAM
     Indication: Preoperative care
     Dosage: DOSAGE FORM: NOT SPECIFIED, 10 MILLIGRAM (MG)
     Route: 065
  18. DIAZEPAM [Interacting]
     Active Substance: DIAZEPAM
     Dosage: DOSAGE FORM: NOT SPECIFIED
     Route: 065
  19. FENTANYL [Interacting]
     Active Substance: FENTANYL
     Indication: Anaesthesia procedure
     Dosage: 13 UG/KG ADMINISTERED VIA  INTRAVENOUS NOT OTHERWISE SPECIFIED ROUTE (DOSAGE FORM: NOT SPECIFIED)
     Route: 065
  20. FENTANYL [Interacting]
     Active Substance: FENTANYL
     Dosage: 13 DOSAGE FORMS ADMINISTERED VIA INTRAVENOUS NOT OTHERWISE SPECIFIED ROUE (DOSAGE FORM: NOT SPECIFIE
     Route: 065
  21. FENTANYL [Interacting]
     Active Substance: FENTANYL
     Dosage: DOSAGE FORM: NOT SPECIFIED, ROUTE INTRAVENOUS NOT OTHERWISE SPECIFIED
     Route: 065
  22. FLUVOXAMINE [Interacting]
     Active Substance: FLUVOXAMINE
     Indication: Product used for unknown indication
     Dosage: UNK
     Route: 065
  23. MEPERIDINE [Interacting]
     Active Substance: MEPERIDINE
     Indication: Product used for unknown indication
     Dosage: UNK
     Route: 065
  24. MEPERIDINE [Interacting]
     Active Substance: MEPERIDINE
     Dosage: DOSAGE FORM NOT SPECIFIED
     Route: 065
  25. METHYLENE BLUE [Interacting]
     Active Substance: METHYLENE BLUE
     Indication: Hypotension
     Dosage: 1 MG/KG, DOSAGE FORM: NOT SPECIFIED,
     Route: 065
  26. METHYLENE BLUE [Interacting]
     Active Substance: METHYLENE BLUE
     Indication: Anaesthesia procedure
     Dosage: DOSAGE FORM: NOT SPECIFIED
     Route: 065
  27. MIDAZOLAM [Interacting]
     Active Substance: MIDAZOLAM
     Indication: Anaesthesia procedure
     Dosage: 0.3 UG/KG
     Route: 065
  28. MIDAZOLAM [Interacting]
     Active Substance: MIDAZOLAM
     Dosage: 0.3 DOSGAE FORMS
     Route: 065
  29. PAROXETINE HYDROCHLORIDE [Interacting]
     Active Substance: PAROXETINE HYDROCHLORIDE
     Indication: Depression
     Dosage: 40 MILLIGRAM  (MG)
     Route: 065
  30. PAROXETINE HYDROCHLORIDE [Interacting]
     Active Substance: PAROXETINE HYDROCHLORIDE
     Indication: Anxiety
     Dosage: 40 MILLIGRAM  (MG)
     Route: 065
  31. PAROXETINE HYDROCHLORIDE [Interacting]
     Active Substance: PAROXETINE HYDROCHLORIDE
     Dosage: UNK
     Route: 065
  32. QUETIAPINE FUMARATE [Interacting]
     Active Substance: QUETIAPINE FUMARATE
     Indication: Depression
     Dosage: 25 MILLIGRAM, 1 EVERY 12 HOURS
     Route: 065
  33. QUETIAPINE FUMARATE [Interacting]
     Active Substance: QUETIAPINE FUMARATE
     Indication: Anxiety
     Dosage: 25 MILLIGRAM, 1 EVERY 12 HOURS, DOSAGE FORM: FILM COATED TABLET
     Route: 065
  34. QUETIAPINE FUMARATE [Interacting]
     Active Substance: QUETIAPINE FUMARATE
     Indication: Hypotension
     Dosage: 25 MILLIGRAM, 2 TIMES EVERY DAY, DOSAGE FORM: FILM COATED TABLET
     Route: 065
  35. QUETIAPINE FUMARATE [Interacting]
     Active Substance: QUETIAPINE FUMARATE
     Dosage: 50 MILLIGRAM (MG), 1 EVERY 1 DAYS
     Route: 065
  36. QUETIAPINE FUMARATE [Interacting]
     Active Substance: QUETIAPINE FUMARATE
     Dosage: 50 MILLIGRAM (MG), 1 EVERY 1 DAYS
     Route: 065
  37. QUETIAPINE FUMARATE [Interacting]
     Active Substance: QUETIAPINE FUMARATE
     Dosage: TABLET
     Route: 048
  38. ROCURONIUM [Interacting]
     Active Substance: ROCURONIUM BROMIDE
     Indication: Hypotonia
     Dosage: 1 MG/KG, DOSAGE FORM: NOT SPECIFIED,
     Route: 065
  39. ROCURONIUM [Interacting]
     Active Substance: ROCURONIUM BROMIDE
     Indication: Depression
     Dosage: DOSAGE FORM: NOT SPECIFIED
     Route: 065
  40. ROCURONIUM [Interacting]
     Active Substance: ROCURONIUM BROMIDE
     Indication: Anxiety
  41. MIDAZOLAM HYDROCHLORIDE [Interacting]
     Active Substance: MIDAZOLAM HYDROCHLORIDE
     Indication: Hypotension
     Dosage: 0.3 UG/KG
     Route: 065
  42. MIDAZOLAM HYDROCHLORIDE [Interacting]
     Active Substance: MIDAZOLAM HYDROCHLORIDE
     Indication: Anaesthesia procedure
     Dosage: UNK
     Route: 065

REACTIONS (11)
  - Serotonin syndrome [Recovered/Resolved]
  - Toxic encephalopathy [Recovered/Resolved]
  - Troponin increased [Recovered/Resolved]
  - Amylase increased [Recovered/Resolved]
  - Drug interaction [Recovered/Resolved]
  - Alanine aminotransferase increased [Recovered/Resolved]
  - Blood creatine phosphokinase increased [Recovered/Resolved]
  - Blood lactate dehydrogenase increased [Recovered/Resolved]
  - Myoglobin urine present [Recovered/Resolved]
  - Blood potassium increased [Recovered/Resolved]
  - Hypotension [Recovered/Resolved]
